FAERS Safety Report 9932604 (Version 1)
Quarter: 2014Q1

REPORT INFORMATION
  Report Type: Spontaneous
  Country: US (occurrence: None)
  Receive Date: 20140227
  Receipt Date: 20140227
  Transmission Date: 20141002
  Serious: No
  Sender: FDA-Public Use
  Company Number: None

PATIENT
  Age: 0 None
  Sex: 0

DRUGS (2)
  1. DORZOLAMIDE/TIMOLOL [Suspect]
     Indication: GLAUCOMA
  2. DORZOLAMIDE/TIMOLOL [Suspect]
     Indication: OCULAR HYPERTENSION

REACTIONS (2)
  - Product quality issue [None]
  - Product label on wrong product [None]
